FAERS Safety Report 6698984-4 (Version None)
Quarter: 2010Q2

REPORT INFORMATION
  Report Type: 
  Country: None (occurrence: None)
  Receive Date: 20100427
  Receipt Date: 20100422
  Transmission Date: 20101027
  Serious: Yes (Other)
  Sender: FDA-Public Use
  Company Number: D0067368A

PATIENT
  Sex: Female

DRUGS (1)
  1. LAMICTAL [Suspect]
     Route: 048
     Dates: start: 20020101

REACTIONS (5)
  - DYSPHAGIA [None]
  - DYSPNOEA [None]
  - LYMPHADENOPATHY [None]
  - TONGUE NEOPLASM BENIGN [None]
  - TRACHEOSTOMY [None]
